FAERS Safety Report 8532757-2 (Version None)
Quarter: 2012Q3

REPORT INFORMATION
  Report Type: 
  Country: None (occurrence: None)
  Receive Date: 20120724
  Receipt Date: 20120719
  Transmission Date: 20120928
  Serious: Yes (Hospitalization, Other)
  Sender: FDA-Public Use
  Company Number: PHHY2012BR062853

PATIENT
  Sex: Male

DRUGS (1)
  1. DIOVAN TRIPLE [Suspect]
     Dosage: 1 DF, UNK(VALS 160 MG, AMLO 5 MG, 12.5 HYDR)

REACTIONS (3)
  - FALL [None]
  - TENDON INJURY [None]
  - ACCIDENT [None]
